FAERS Safety Report 20636695 (Version 13)
Quarter: 2024Q1

REPORT INFORMATION
  Report Type: Spontaneous
  Country: US (occurrence: US)
  Receive Date: 20220325
  Receipt Date: 20240124
  Transmission Date: 20240409
  Serious: Yes (Life-Threatening, Other)
  Sender: FDA-Public Use
  Company Number: US-PFIZER INC-202200410336

PATIENT
  Age: 60 Year
  Sex: Female
  Weight: 99.787 kg

DRUGS (8)
  1. XELJANZ [Suspect]
     Active Substance: TOFACITINIB CITRATE
     Indication: Colitis ulcerative
     Dosage: 10 MG, 1X/DAY
  2. XELJANZ [Suspect]
     Active Substance: TOFACITINIB CITRATE
     Indication: Crohn^s disease
     Dosage: 10 MG, 2X/DAY
     Route: 048
     Dates: start: 202006
  3. XELJANZ [Suspect]
     Active Substance: TOFACITINIB CITRATE
     Indication: Inflammatory bowel disease
     Dosage: 10 MG, 1X/DAY
     Dates: end: 20220117
  4. XELJANZ [Suspect]
     Active Substance: TOFACITINIB CITRATE
     Dosage: 10 MG, 1X/DAY
     Dates: start: 20220131
  5. XELJANZ [Suspect]
     Active Substance: TOFACITINIB CITRATE
     Dosage: 10 MG, 2X/DAY
     Route: 048
  6. MESALAMINE [Concomitant]
     Active Substance: MESALAMINE
     Indication: Colitis ulcerative
     Dosage: 2 DF, 3X/DAY
     Route: 048
     Dates: start: 201308
  7. MESALAMINE [Concomitant]
     Active Substance: MESALAMINE
     Indication: Crohn^s disease
     Dosage: 400MG, TWO CAPSULES THREE TIMES A DAY
     Route: 048
     Dates: start: 2012
  8. MESALAMINE [Concomitant]
     Active Substance: MESALAMINE
     Indication: Inflammatory bowel disease

REACTIONS (18)
  - Colitis [Not Recovered/Not Resolved]
  - Diarrhoea [Not Recovered/Not Resolved]
  - Large intestinal haemorrhage [Not Recovered/Not Resolved]
  - Dehydration [Unknown]
  - COVID-19 pneumonia [Not Recovered/Not Resolved]
  - Toothache [Unknown]
  - Mastication disorder [Unknown]
  - COVID-19 [Recovered/Resolved]
  - Herpes zoster [Recovered/Resolved]
  - Post herpetic neuralgia [Unknown]
  - Nausea [Unknown]
  - Hypersensitivity [Unknown]
  - Sinusitis [Unknown]
  - Back pain [Recovered/Resolved]
  - Muscle spasms [Unknown]
  - Gastrointestinal pain [Unknown]
  - Abdominal pain [Recovered/Resolved]
  - Intentional product misuse [Unknown]

NARRATIVE: CASE EVENT DATE: 20210301
